FAERS Safety Report 8910107 (Version 4)
Quarter: 2013Q2

REPORT INFORMATION
  Report Type: Spontaneous
  Country: JP (occurrence: JP)
  Receive Date: 20121115
  Receipt Date: 20130412
  Transmission Date: 20140414
  Serious: Yes (Other)
  Sender: FDA-Public Use
  Company Number: JP-JNJFOC-20121104937

PATIENT
  Age: 65 Year
  Sex: Female
  Weight: 54 kg

DRUGS (10)
  1. REMICADE [Suspect]
     Indication: RHEUMATOID ARTHRITIS
     Dosage: 37TH INFUSION
     Route: 042
     Dates: start: 20120717
  2. REMICADE [Suspect]
     Indication: RHEUMATOID ARTHRITIS
     Route: 042
     Dates: start: 20070206
  3. RHEUMATREX [Suspect]
     Indication: RHEUMATOID ARTHRITIS
     Dosage: 6 MG/W
     Route: 048
     Dates: start: 2007
  4. PREDNISOLONE [Concomitant]
     Indication: RHEUMATOID ARTHRITIS
     Route: 048
  5. SELBEX [Concomitant]
     Dosage: 100 MG, 50 MG
     Route: 048
  6. NIZATIDINE [Concomitant]
     Dosage: 300 MG, 150 MG
     Route: 048
  7. FOLIAMIN [Concomitant]
     Route: 048
  8. BONALON [Concomitant]
     Indication: OSTEOPOROSIS
     Dosage: 35 MG/W
     Route: 048
  9. CORINAEL [Concomitant]
     Indication: HYPERTENSION
     Dosage: 20 MG, 10 MG
     Route: 048
  10. AZULFIDINE-EN [Concomitant]
     Indication: RHEUMATOID ARTHRITIS
     Dosage: 1000 MG, 500 MG
     Route: 048

REACTIONS (1)
  - Lymphoma [Recovering/Resolving]
